FAERS Safety Report 21674078 (Version 1)
Quarter: 2022Q4

REPORT INFORMATION
  Report Type: Spontaneous
  Country: JP (occurrence: JP)
  Receive Date: 20221202
  Receipt Date: 20221202
  Transmission Date: 20230112
  Serious: Yes (Other)
  Sender: FDA-Public Use
  Company Number: JP-ANIPHARMA-2022-JP-000531

PATIENT
  Age: 63 Year
  Sex: Male

DRUGS (8)
  1. CASODEX [Suspect]
     Active Substance: BICALUTAMIDE
     Indication: Prostate cancer
     Dosage: 80 MG QD
     Route: 048
     Dates: start: 2017, end: 201801
  2. LYNPARZA [Suspect]
     Active Substance: OLAPARIB
     Dosage: 300 MG DAILY / 600 MG DAILY / 500 MG
     Route: 048
     Dates: start: 2022, end: 202210
  3. ZOLADEX [Suspect]
     Active Substance: GOSERELIN ACETATE
     Dosage: 3.6 MG Q4WK
     Route: 058
     Dates: start: 2017
  4. DOCETAXEL [Concomitant]
     Active Substance: DOCETAXEL
     Route: 065
     Dates: start: 201801, end: 2018
  5. ENZALUTAMIDE [Concomitant]
     Active Substance: ENZALUTAMIDE
     Route: 065
     Dates: start: 2019, end: 2019
  6. CABAZITAXEL [Concomitant]
     Active Substance: CABAZITAXEL
     Route: 065
     Dates: start: 2021, end: 2021
  7. ETHINYL ESTRADIOL [Concomitant]
     Active Substance: ETHINYL ESTRADIOL
     Route: 065
     Dates: start: 2020, end: 2021
  8. ABIRATERONE ACETATE [Concomitant]
     Active Substance: ABIRATERONE ACETATE
     Route: 065
     Dates: start: 2021, end: 2021

REACTIONS (4)
  - Jaw fracture [Unknown]
  - Gastric haemorrhage [Unknown]
  - Haemoglobin decreased [Unknown]
  - Malignant neoplasm progression [Unknown]

NARRATIVE: CASE EVENT DATE: 20180101
